FAERS Safety Report 11579260 (Version 2)
Quarter: 2016Q1

REPORT INFORMATION
  Report Type: Spontaneous
  Country: US (occurrence: US)
  Receive Date: 20150930
  Receipt Date: 20160301
  Transmission Date: 20160525
  Serious: Yes (Hospitalization, Other)
  Sender: FDA-Public Use
  Company Number: US-PFIZER INC-2015325828

PATIENT
  Age: 77 Year
  Sex: Male

DRUGS (29)
  1. TESTOSTERONE CIPIONATE [Suspect]
     Active Substance: TESTOSTERONE
     Indication: HORMONE REPLACEMENT THERAPY
     Dosage: UNK (EVERY 2 TO 4 WEEKS)
     Dates: start: 20060315, end: 20070730
  2. TESTOSTERONE CIPIONATE [Suspect]
     Active Substance: TESTOSTERONE
     Dosage: UNK (EVERY 2 TO 4 WEEKS)
     Dates: start: 20121004
  3. DEPO-TESTOSTERONE [Suspect]
     Active Substance: TESTOSTERONE CYPIONATE
     Dosage: UNK (EVERY 2 TO 4 WEEKS)
     Dates: start: 20120405
  4. TESTOSTERONE CIPIONATE [Suspect]
     Active Substance: TESTOSTERONE
     Dosage: UNK (EVERY 2 TO 4 WEEKS)
     Dates: start: 20081002, end: 20100610
  5. TESTOSTERONE CIPIONATE [Suspect]
     Active Substance: TESTOSTERONE
     Dosage: UNK (EVERY 2 TO 4 WEEKS)
     Dates: start: 20100902, end: 20120105
  6. TESTOSTERONE CIPIONATE [Suspect]
     Active Substance: TESTOSTERONE
     Dosage: UNK (EVERY 2 TO 4 WEEKS)
     Dates: start: 20120802
  7. FLOMAX [Concomitant]
     Active Substance: TAMSULOSIN HYDROCHLORIDE
     Indication: PROSTATE CANCER
     Dosage: UNK
     Dates: start: 2003, end: 2015
  8. DEPO-TESTOSTERONE [Suspect]
     Active Substance: TESTOSTERONE CYPIONATE
     Dosage: UNK (EVERY 2 TO 4 WEEKS)
     Dates: start: 20080331
  9. DEPO-TESTOSTERONE [Suspect]
     Active Substance: TESTOSTERONE CYPIONATE
     Indication: ASTHENIA
     Dosage: UNK (EVERY 2 TO 4 WEEKS)
     Dates: start: 20071001
  10. DEPO-TESTOSTERONE [Suspect]
     Active Substance: TESTOSTERONE CYPIONATE
     Dosage: UNK (EVERY 2 TO 4 WEEKS)
     Dates: start: 20100708
  11. DEPO-TESTOSTERONE [Suspect]
     Active Substance: TESTOSTERONE CYPIONATE
     Dosage: UNK (EVERY 2 TO 4 WEEKS)
     Dates: start: 20100805
  12. DEPO-TESTOSTERONE [Suspect]
     Active Substance: TESTOSTERONE CYPIONATE
     Dosage: UNK (EVERY 2 TO 4 WEEKS)
     Dates: start: 20130107
  13. DEPO-TESTOSTERONE [Suspect]
     Active Substance: TESTOSTERONE CYPIONATE
     Dosage: UNK (EVERY 2 TO 4 WEEKS)
     Dates: start: 20130509
  14. GLIMEPIRIDE. [Concomitant]
     Active Substance: GLIMEPIRIDE
     Indication: DIABETES MELLITUS
     Dosage: UNK
     Dates: start: 2012, end: 2015
  15. DEPO-TESTOSTERONE [Suspect]
     Active Substance: TESTOSTERONE CYPIONATE
     Indication: FATIGUE
     Dosage: UNK (EVERY 2 TO 4 WEEKS)
     Dates: start: 20070830
  16. DEPO-TESTOSTERONE [Suspect]
     Active Substance: TESTOSTERONE CYPIONATE
     Dosage: UNK (EVERY 2 TO 4 WEEKS)
     Dates: start: 20071025
  17. DEPO-TESTOSTERONE [Suspect]
     Active Substance: TESTOSTERONE CYPIONATE
     Dosage: UNK (EVERY 2 TO 4 WEEKS)
     Dates: start: 20130208
  18. TESTOSTERONE CIPIONATE [Suspect]
     Active Substance: TESTOSTERONE
     Indication: ASTHENIA
     Dosage: UNK (EVERY 2 TO 4 WEEKS)
     Dates: start: 20080131
  19. TESTOSTERONE CIPIONATE [Suspect]
     Active Substance: TESTOSTERONE
     Dosage: UNK (EVERY 2 TO 4 WEEKS)
     Dates: start: 20080728
  20. DEPO-TESTOSTERONE [Suspect]
     Active Substance: TESTOSTERONE CYPIONATE
     Dosage: UNK (EVERY 2 TO 4 WEEKS)
     Dates: start: 20080529
  21. DEPO-TESTOSTERONE [Suspect]
     Active Substance: TESTOSTERONE CYPIONATE
     Dosage: UNK (EVERY 2 TO 4 WEEKS)
     Dates: start: 20120305
  22. TESTOSTERONE CIPIONATE [Suspect]
     Active Substance: TESTOSTERONE
     Dosage: UNK (EVERY 2 TO 4 WEEKS)
     Dates: start: 20120709
  23. AMOXICILLIN/POTCLAV [Concomitant]
     Indication: TRANSURETHRAL PROSTATECTOMY
     Dosage: UNK
     Dates: start: 2003, end: 2015
  24. DEPO-TESTOSTERONE [Suspect]
     Active Substance: TESTOSTERONE CYPIONATE
     Indication: HORMONE REPLACEMENT THERAPY
     Dosage: UNK
     Dates: start: 200603, end: 201404
  25. DEPO-TESTOSTERONE [Suspect]
     Active Substance: TESTOSTERONE CYPIONATE
     Dosage: UNK (EVERY 2 TO 4 WEEKS)
     Dates: start: 20080428
  26. DEPO-TESTOSTERONE [Suspect]
     Active Substance: TESTOSTERONE CYPIONATE
     Dosage: UNK (EVERY 2 TO 4 WEEKS)
     Dates: start: 20120910
  27. DEPO-TESTOSTERONE [Suspect]
     Active Substance: TESTOSTERONE CYPIONATE
     Dosage: UNK (EVERY 2 TO 4 WEEKS)
     Dates: start: 20121105
  28. DEPO-TESTOSTERONE [Suspect]
     Active Substance: TESTOSTERONE CYPIONATE
     Dosage: UNK (EVERY 2 TO 4 WEEKS)
     Dates: start: 20121210
  29. TESTOSTERONE CIPIONATE [Suspect]
     Active Substance: TESTOSTERONE
     Indication: FATIGUE
     Dosage: UNK (EVERY 2 TO 4 WEEKS)
     Dates: start: 20071203

REACTIONS (3)
  - Shock [Unknown]
  - Acute myocardial infarction [Unknown]
  - Thrombosis [Unknown]

NARRATIVE: CASE EVENT DATE: 20130924
